FAERS Safety Report 23935931 (Version 1)
Quarter: 2024Q2

REPORT INFORMATION
  Report Type: Other
  Country: FR (occurrence: FR)
  Receive Date: 20240604
  Receipt Date: 20240604
  Transmission Date: 20240716
  Serious: Yes (Other)
  Sender: FDA-Public Use
  Company Number: None

PATIENT

DRUGS (6)
  1. AMLODIPINE [Suspect]
     Active Substance: AMLODIPINE BESYLATE
     Indication: Wrong product administered
     Dosage: 10 MILLIGRAM
     Route: 048
     Dates: start: 20240320, end: 20240320
  2. LEVETIRACETAM [Suspect]
     Active Substance: LEVETIRACETAM
     Indication: Wrong product administered
     Dosage: 1000 MILLIGRAM
     Route: 048
     Dates: start: 20240320, end: 20240320
  3. FUROSEMIDE [Suspect]
     Active Substance: FUROSEMIDE
     Indication: Wrong product administered
     Dosage: 40 MILLIGRAM
     Route: 048
     Dates: start: 20240320, end: 20240320
  4. ALLOPURINOL [Suspect]
     Active Substance: ALLOPURINOL
     Indication: Wrong product administered
     Dosage: 100 MILLIGRAM
     Route: 048
     Dates: start: 20240320, end: 20240320
  5. BISOPROLOL [Interacting]
     Active Substance: BISOPROLOL\BISOPROLOL FUMARATE
     Indication: Wrong product administered
     Dosage: 1.25 MILLIGRAM
     Route: 048
     Dates: start: 20240320, end: 20240320
  6. OXAZEPAM [Suspect]
     Active Substance: OXAZEPAM
     Indication: Wrong product administered
     Dosage: 10 MILLIGRAM
     Route: 048
     Dates: start: 20240320, end: 20240320

REACTIONS (3)
  - Oxygen saturation decreased [Recovered/Resolved]
  - Hypotension [Recovered/Resolved]
  - Wrong patient [Recovered/Resolved]

NARRATIVE: CASE EVENT DATE: 20240320
